FAERS Safety Report 14313396 (Version 2)
Quarter: 2018Q1

REPORT INFORMATION
  Report Type: Spontaneous
  Country: GB (occurrence: GB)
  Receive Date: 20171221
  Receipt Date: 20180117
  Transmission Date: 20180509
  Serious: Yes (Death)
  Sender: FDA-Public Use
  Company Number: GB-PFIZER INC-2017543280

PATIENT
  Age: 38 Year
  Sex: Female

DRUGS (6)
  1. VALIUM [Suspect]
     Active Substance: DIAZEPAM
     Dosage: TWO YELLOW VALIUM
     Dates: start: 20170707
  2. VALIUM [Suspect]
     Active Substance: DIAZEPAM
     Dosage: APPROXIMATELY FOUR OR FIVE BLUE VALIUM
     Dates: start: 20170707
  3. HEROIN [Suspect]
     Active Substance: DIAMORPHINE
     Dosage: UNK
  4. COCAINE [Suspect]
     Active Substance: COCAINE
     Dosage: UNK
  5. METHADONE [Suspect]
     Active Substance: METHADONE HYDROCHLORIDE
     Indication: DRUG DEPENDENCE
     Dosage: UNK
  6. PREGABALIN. [Suspect]
     Active Substance: PREGABALIN
     Indication: ANXIETY
     Dosage: 6 DF, UNK
     Dates: start: 20170707

REACTIONS (2)
  - Toxicity to various agents [Fatal]
  - Intentional product misuse [Fatal]
